FAERS Safety Report 8875833 (Version 2)
Quarter: 2012Q4

REPORT INFORMATION
  Report Type: 
  Country: FR (occurrence: FR)
  Receive Date: 20121030
  Receipt Date: 20121210
  Transmission Date: 20130627
  Serious: Yes (Death)
  Sender: FDA-Public Use
  Company Number: FR-GLAXOSMITHKLINE-B0839366A

PATIENT
  Age: 37 Year
  Sex: Male

DRUGS (10)
  1. DEROXAT [Suspect]
     Indication: PRODUCT USED FOR UNKNOWN INDICATION
     Dosage: 50MG Per day
     Route: 048
     Dates: end: 20120826
  2. VENTOLIN [Suspect]
     Indication: PRODUCT USED FOR UNKNOWN INDICATION
     Route: 055
     Dates: end: 20120826
  3. METHADONE [Suspect]
     Indication: PRODUCT USED FOR UNKNOWN INDICATION
     Dosage: 40MG Per day
     Route: 048
     Dates: start: 201206, end: 20120826
  4. QUETIAPINE [Suspect]
     Indication: SCHIZOAFFECTIVE DISORDER
     Dosage: 800MG At night
     Route: 048
     Dates: start: 201111, end: 20120826
  5. NOZINAN [Suspect]
     Indication: PRODUCT USED FOR UNKNOWN INDICATION
     Dosage: 10DROP Twice per day
     Route: 048
     Dates: start: 201207, end: 20120826
  6. LYRICA [Suspect]
     Indication: PRODUCT USED FOR UNKNOWN INDICATION
     Dosage: 200MG Twice per day
     Route: 048
     Dates: end: 20120826
  7. VALIUM [Suspect]
     Indication: PRODUCT USED FOR UNKNOWN INDICATION
     Dosage: 40MG Per day
     Route: 048
     Dates: end: 20120826
  8. FORLAX [Suspect]
     Indication: PRODUCT USED FOR UNKNOWN INDICATION
     Dosage: 20MG Per day
     Route: 048
     Dates: end: 20120826
  9. SUBUTEX [Concomitant]
     Route: 042
  10. SUBOXONE [Concomitant]
     Route: 065
     Dates: end: 201206

REACTIONS (3)
  - Death [Fatal]
  - Drug dependence [Unknown]
  - Suicide attempt [Unknown]
